FAERS Safety Report 17592800 (Version 1)
Quarter: 2020Q1

REPORT INFORMATION
  Report Type: Report from Study
  Country: US (occurrence: US)
  Receive Date: 20200327
  Receipt Date: 20200327
  Transmission Date: 20200409
  Serious: Yes (Hospitalization)
  Sender: FDA-Public Use
  Company Number: US-GLAXOSMITHKLINE-US2020GSK051701

PATIENT
  Sex: Female
  Weight: 45.35 kg

DRUGS (1)
  1. ROLAPITANT HYDROCHLORIDE [Suspect]
     Active Substance: ROLAPITANT
     Indication: OVARIAN CANCER
     Dosage: 2 DF, Z (BY MOUTH 1-2 HOURS)
     Route: 048

REACTIONS (1)
  - Hospitalisation [Unknown]
